FAERS Safety Report 4694254-4 (Version None)
Quarter: 2005Q2

REPORT INFORMATION
  Report Type: 
  Country: None (occurrence: None)
  Receive Date: 20050620
  Receipt Date: 20050608
  Transmission Date: 20051028
  Serious: Yes (Death)
  Sender: FDA-Public Use
  Company Number: CA-JNJFOC-20050201419

PATIENT
  Sex: Male
  Weight: 102 kg

DRUGS (4)
  1. RISPERDAL [Suspect]
     Dosage: DOSE RE-ADJUSTED BY GENERAL PRACTITIONER/FAMILY PHYSICIAN (DOSE AND SCHEDULE UNSPECIFIED).
  2. RISPERDAL [Suspect]
     Dosage: DOSE DECREASED BY PSYCHIATRIST TO 0.5 MG (SCHEDULE UNSPECIFIED).
  3. RISPERDAL [Suspect]
     Indication: DEPRESSION
     Dosage: STARTED BY GENERAL PRACTITIONER (DOSE AND SCHEDULE UNSPECIFIED).
  4. VENLAFAXINE HCL [Concomitant]
     Indication: DEPRESSION

REACTIONS (3)
  - AORTIC STENOSIS [None]
  - DRUG TOXICITY [None]
  - PLATELET COUNT DECREASED [None]
